FAERS Safety Report 6126168-7 (Version None)
Quarter: 2009Q1

REPORT INFORMATION
  Report Type: 
  Country: None (occurrence: None)
  Receive Date: 20090320
  Receipt Date: 20090309
  Transmission Date: 20090719
  Serious: Yes (Other)
  Sender: FDA-Public Use
  Company Number: B0551805A

PATIENT
  Age: 72 Year
  Sex: Male
  Weight: 78 kg

DRUGS (6)
  1. AVANDAMET [Suspect]
     Route: 048
     Dates: start: 20050601, end: 20090101
  2. LAMALINE [Concomitant]
     Indication: DRUG USE FOR UNKNOWN INDICATION
     Route: 065
  3. FORLAX [Concomitant]
     Indication: DRUG USE FOR UNKNOWN INDICATION
     Route: 065
  4. SPASFON [Concomitant]
     Indication: DRUG USE FOR UNKNOWN INDICATION
     Route: 065
  5. FENOFIBRATE [Concomitant]
     Indication: DRUG USE FOR UNKNOWN INDICATION
     Route: 065
  6. AMARYL [Concomitant]
     Dosage: 2MG PER DAY
     Route: 048
     Dates: end: 20080201

REACTIONS (1)
  - NEPHROLITHIASIS [None]
